FAERS Safety Report 9820941 (Version 1)
Quarter: 2014Q1

REPORT INFORMATION
  Report Type: Report from Study
  Country: DE (occurrence: DE)
  Receive Date: 20140116
  Receipt Date: 20140116
  Transmission Date: 20141002
  Serious: Yes (Hospitalization, Other)
  Sender: FDA-Public Use
  Company Number: DE-ABBVIE-14P-062-1187988-00

PATIENT
  Sex: Female

DRUGS (2)
  1. ZEMPLAR [Suspect]
     Indication: PRODUCT USED FOR UNKNOWN INDICATION
  2. HEPARIN [Suspect]
     Indication: PRODUCT USED FOR UNKNOWN INDICATION

REACTIONS (9)
  - Coronary artery disease [Not Recovered/Not Resolved]
  - Chest pain [Recovered/Resolved]
  - Haemoglobin decreased [Recovered/Resolved]
  - Arthralgia [Recovered/Resolved]
  - Bronchitis [Recovered/Resolved]
  - Epistaxis [Recovered/Resolved]
  - Anaemia [Unknown]
  - Colon adenoma [Unknown]
  - Overdose [Unknown]
